FAERS Safety Report 4405986-7 (Version None)
Quarter: 2004Q3

REPORT INFORMATION
  Report Type: 
  Country: None (occurrence: None)
  Receive Date: 20040723
  Receipt Date: 20040302
  Transmission Date: 20050211
  Serious: No
  Sender: FDA-Public Use
  Company Number: US-GLAXOSMITHKLINE-A0500843A

PATIENT
  Age: 88 Year
  Sex: Female

DRUGS (4)
  1. AVANDIA [Suspect]
     Dosage: 8MG PER DAY
     Route: 048
  2. GLYBURIDE [Concomitant]
  3. COZAAR [Concomitant]
  4. IMDUR [Concomitant]
     Route: 065

REACTIONS (1)
  - WEIGHT INCREASED [None]
